FAERS Safety Report 4881962-5 (Version None)
Quarter: 2006Q1

REPORT INFORMATION
  Report Type: 
  Country: None (occurrence: None)
  Receive Date: 20060117
  Receipt Date: 20060105
  Transmission Date: 20060701
  Serious: Yes (Hospitalization, Congenital Anomaly)
  Sender: FDA-Public Use
  Company Number: FR-GLAXOSMITHKLINE-B0405786A

PATIENT
  Sex: Female

DRUGS (5)
  1. RETROVIR [Suspect]
     Indication: ANTIVIRAL PROPHYLAXIS
     Route: 048
     Dates: start: 20050919, end: 20050101
  2. TRIZIVIR [Suspect]
     Dosage: 2TAB PER DAY
     Dates: start: 20050329, end: 20050919
  3. HEPATITIS B VACCINE [Concomitant]
     Route: 065
     Dates: start: 20050919
  4. PENTAVAC [Concomitant]
     Route: 065
     Dates: start: 20051116, end: 20051116
  5. DESMOPRESSIN [Concomitant]

REACTIONS (13)
  - BLOOD LACTIC ACID INCREASED [None]
  - DRUG EXPOSURE DURING PREGNANCY [None]
  - EATING DISORDER [None]
  - FACIAL DYSMORPHISM [None]
  - GAMMA-GLUTAMYLTRANSFERASE INCREASED [None]
  - GASTROOESOPHAGEAL REFLUX DISEASE [None]
  - HEART RATE ABNORMAL [None]
  - HYPERTONIA [None]
  - HYPOTONIA [None]
  - NUCLEAR MAGNETIC RESONANCE IMAGING BRAIN ABNORMAL [None]
  - STRABISMUS [None]
  - VOMITING [None]
  - WEIGHT DECREASED [None]
